FAERS Safety Report 5581402-7 (Version None)
Quarter: 2008Q1

REPORT INFORMATION
  Report Type: 
  Country: None (occurrence: None)
  Receive Date: 20080103
  Receipt Date: 20080103
  Transmission Date: 20080703
  Serious: Yes (Life-Threatening)
  Sender: FDA-Public Use
  Company Number: None

PATIENT
  Age: 50 Year
  Sex: Male

DRUGS (2)
  1. IMMUNE GLOBULIN   10GRAMS   TALECRIS [Suspect]
     Dosage: 30GRAMS  ONCE  IV
     Route: 042
     Dates: start: 20071217, end: 20071227
  2. IMMUNE GLOBULIN  10GRAMS  TALECRIS [Suspect]

REACTIONS (8)
  - AGITATION [None]
  - ANAPHYLACTIC REACTION [None]
  - DIALYSIS [None]
  - FLUID OVERLOAD [None]
  - HYPERTENSION [None]
  - INFUSION RELATED REACTION [None]
  - TACHYCARDIA [None]
  - TACHYPNOEA [None]
